FAERS Safety Report 5711129-X (Version None)
Quarter: 2008Q2

REPORT INFORMATION
  Report Type: 
  Country: None (occurrence: None)
  Receive Date: 20080417
  Receipt Date: 20080417
  Transmission Date: 20081010
  Serious: Yes (Life-Threatening)
  Sender: FDA-Public Use
  Company Number: None

PATIENT
  Age: 53 Year
  Sex: Male
  Weight: 81.1939 kg

DRUGS (1)
  1. INSULIN INSULATARD NPH NORDISK [Suspect]
     Indication: DIABETES MELLITUS
     Dosage: 25/20 MORNING OTHER  25 EVENING OTHER
     Route: 050
     Dates: start: 20080403, end: 20080411

REACTIONS (2)
  - BLOOD GLUCOSE INCREASED [None]
  - PHARMACEUTICAL PRODUCT COMPLAINT [None]
